FAERS Safety Report 23060337 (Version 1)
Quarter: 2023Q4

REPORT INFORMATION
  Report Type: Spontaneous
  Country: US (occurrence: US)
  Receive Date: 20231012
  Receipt Date: 20231012
  Transmission Date: 20240109
  Serious: No
  Sender: FDA-Public Use
  Company Number: US-Sprout Pharmaceuticals, Inc.-2022SP000349

PATIENT
  Sex: Female

DRUGS (1)
  1. ADDYI [Suspect]
     Active Substance: FLIBANSERIN
     Indication: Libido decreased
     Route: 048
     Dates: start: 202211

REACTIONS (3)
  - Abnormal dreams [Recovered/Resolved]
  - Sleep disorder [Recovered/Resolved]
  - Anxiety [Recovered/Resolved]

NARRATIVE: CASE EVENT DATE: 20221101
